FAERS Safety Report 4453733-5 (Version None)
Quarter: 2004Q3

REPORT INFORMATION
  Report Type: 
  Country: None (occurrence: None)
  Receive Date: 20040920
  Receipt Date: 20040907
  Transmission Date: 20050211
  Serious: Yes (Other)
  Sender: FDA-Public Use
  Company Number: 200418920GDDC

PATIENT
  Age: 78 Year
  Sex: Male

DRUGS (5)
  1. FRUSEMIDE [Suspect]
     Indication: LEFT VENTRICULAR FAILURE
     Route: 048
     Dates: start: 20000111, end: 20040824
  2. LISINOPRIL [Suspect]
     Route: 048
     Dates: start: 20040730
  3. LISINOPRIL [Concomitant]
     Route: 048
     Dates: start: 20000719
  4. AMLODIPINE [Concomitant]
     Route: 048
     Dates: start: 20000719
  5. PRAVASTATIN [Concomitant]
     Route: 048
     Dates: start: 20040301

REACTIONS (2)
  - DRUG EFFECT INCREASED [None]
  - DRUG INTERACTION [None]
